FAERS Safety Report 5210317-9 (Version None)
Quarter: 2007Q1

REPORT INFORMATION
  Report Type: 
  Country: None (occurrence: None)
  Receive Date: 20070111
  Receipt Date: 20070104
  Transmission Date: 20070707
  Serious: Yes (Other)
  Sender: FDA-Public Use
  Company Number: HQWYE482304JAN07

PATIENT
  Age: 71 Year
  Sex: Male

DRUGS (1)
  1. ANCARON (AMIODARONE TABLET) [Suspect]
     Dosage: 100 MG 1X PER 2 DAY
     Route: 048

REACTIONS (2)
  - NASOPHARYNGITIS [None]
  - PNEUMONIA [None]
